FAERS Safety Report 4694130-7 (Version None)
Quarter: 2005Q2

REPORT INFORMATION
  Report Type: 
  Country: None (occurrence: None)
  Receive Date: 20050616
  Receipt Date: 20050616
  Transmission Date: 20051028
  Serious: Yes (Disabling)
  Sender: FDA-Public Use
  Company Number: None

PATIENT
  Age: 53 Year
  Sex: Female
  Weight: 49.8957 kg

DRUGS (1)
  1. BENOQUIN 20% [Suspect]
     Indication: SKIN HYPERPIGMENTATION
     Dosage: ONE APPLICATION, TOPICAL
     Route: 061
     Dates: start: 20040202

REACTIONS (12)
  - APPLICATION SITE DISCOLOURATION [None]
  - APPLICATION SITE ERYTHEMA [None]
  - APPLICATION SITE PAIN [None]
  - APPLICATION SITE PRURITUS [None]
  - APPLICATION SITE SWELLING [None]
  - BURNING SENSATION [None]
  - OCHRONOSIS [None]
  - PHOTOSENSITIVITY REACTION [None]
  - PRURITUS [None]
  - SKIN HYPERPIGMENTATION [None]
  - SOCIAL AVOIDANT BEHAVIOUR [None]
  - SWELLING FACE [None]
